FAERS Safety Report 23144034 (Version 4)
Quarter: 2024Q2

REPORT INFORMATION
  Report Type: Spontaneous
  Country: US (occurrence: US)
  Receive Date: 20231103
  Receipt Date: 20240603
  Transmission Date: 20240716
  Serious: Yes (Other)
  Sender: FDA-Public Use
  Company Number: US-BRISTOL-MYERS SQUIBB COMPANY-2023-156190

PATIENT
  Age: 71 Year
  Sex: Male
  Weight: 109.32 kg

DRUGS (2)
  1. REVLIMID [Suspect]
     Active Substance: LENALIDOMIDE
     Indication: Plasma cell myeloma
     Dosage: DAILY ON DAYS 1-21 OF 28 DAY CYCLE
     Route: 048
     Dates: start: 20230927
  2. REVLIMID [Suspect]
     Active Substance: LENALIDOMIDE
     Dosage: D 1-21 Q 28 DAYS, DAILY X 21 DAYS ON ?AND 7 DAYS OFF
     Route: 048
     Dates: start: 202404

REACTIONS (7)
  - Pneumonia [Not Recovered/Not Resolved]
  - Product distribution issue [Unknown]
  - Herpes zoster [Not Recovered/Not Resolved]
  - Neuropathy peripheral [Not Recovered/Not Resolved]
  - Drug ineffective [Not Recovered/Not Resolved]
  - Fatigue [Not Recovered/Not Resolved]
  - Laboratory test abnormal [Not Recovered/Not Resolved]
